FAERS Safety Report 7899416-0 (Version None)
Quarter: 2011Q4

REPORT INFORMATION
  Report Type: 
  Country: None (occurrence: None)
  Receive Date: 20111107
  Receipt Date: 20110914
  Transmission Date: 20120403
  Serious: No
  Sender: FDA-Public Use
  Company Number: US-AMGEN-USASP2011047311

PATIENT
  Age: 58 Year
  Sex: Female

DRUGS (2)
  1. ENBREL [Suspect]
     Indication: RHEUMATOID ARTHRITIS
     Dosage: 50 MG, QWK
     Dates: start: 20110505
  2. METHOTREXATE [Concomitant]
     Dosage: 6 MG, QWK
     Dates: start: 20110505

REACTIONS (3)
  - WEIGHT INCREASED [None]
  - MUSCULAR WEAKNESS [None]
  - COLD SWEAT [None]
